FAERS Safety Report 9763913 (Version 6)
Quarter: 2014Q2

REPORT INFORMATION
  Report Type: Report from Study
  Country: SG (occurrence: SG)
  Receive Date: 20131216
  Receipt Date: 20140530
  Transmission Date: 20141212
  Serious: Yes (Hospitalization)
  Sender: FDA-Public Use
  Company Number: SG-ONYX-2013-1849

PATIENT
  Age: 64 Year
  Sex: Female

DRUGS (11)
  1. CARFILZOMIB [Suspect]
     Indication: PLASMA CELL MYELOMA
     Route: 042
     Dates: start: 20130625, end: 20130626
  2. CARFILZOMIB [Suspect]
     Route: 042
     Dates: start: 20130702, end: 20130710
  3. CARFILZOMIB [Suspect]
     Route: 042
     Dates: start: 20130723, end: 20131114
  4. CARFILZOMIB [Suspect]
     Route: 042
     Dates: start: 20131209, end: 20131210
  5. DEXAMETHASONE [Suspect]
     Indication: PLASMA CELL MYELOMA
     Route: 048
     Dates: start: 20130625, end: 20131114
  6. DEXAMETHASONE [Suspect]
     Route: 048
     Dates: start: 20131209, end: 20131210
  7. GLUCOSAMINE, CHONDROITIN [Concomitant]
     Indication: NUTRITIONAL SUPPLEMENTATION
     Route: 048
     Dates: start: 20071113
  8. LOVASTATIN [Concomitant]
     Indication: HYPERLIPIDAEMIA
     Route: 048
     Dates: start: 201006
  9. ACYCLOVIR [Concomitant]
     Indication: ANTIVIRAL PROPHYLAXIS
     Route: 048
     Dates: start: 20130625
  10. OMEPRAZOLE [Concomitant]
     Indication: PROPHYLAXIS
     Route: 048
     Dates: start: 20130625
  11. COZAAR [Concomitant]
     Indication: HYPERTENSION
     Route: 048
     Dates: start: 20130827

REACTIONS (2)
  - Pneumonitis [Recovered/Resolved]
  - Pneumonia [Recovering/Resolving]
